FAERS Safety Report 7372884-9 (Version None)
Quarter: 2011Q1

REPORT INFORMATION
  Report Type: 
  Country: None (occurrence: None)
  Receive Date: 20110324
  Receipt Date: 20110318
  Transmission Date: 20110831
  Serious: Yes (Death)
  Sender: FDA-Public Use
  Company Number: FR-PFIZER INC-2011060920

PATIENT
  Age: 54 Year
  Sex: Female
  Weight: 96 kg

DRUGS (10)
  1. GARDENAL ^AVENTIS^ [Concomitant]
     Dosage: 3 DF, 1X/DAY
     Route: 048
     Dates: start: 20030101
  2. SOMATROPIN [Suspect]
     Indication: HYPOPITUITARISM
     Dosage: 0.6 MG, 1X/DAY
     Dates: start: 20040603
  3. HYDROCORTISONE [Concomitant]
     Dosage: 20 MG, 1X/DAY
     Route: 048
     Dates: start: 20030701
  4. CRESTOR [Concomitant]
     Dosage: 10 MG, 1X/DAY
     Route: 048
     Dates: start: 20090101
  5. TAHOR [Suspect]
     Dosage: 20 MG, 1X/DAY
     Route: 048
     Dates: start: 20030501
  6. MICARDIS [Suspect]
     Dosage: 1 DF, 1X/DAY
     Route: 048
     Dates: start: 20030501
  7. MAXEPA [Suspect]
     Dosage: 6.5 DF, 1X/DAY
     Route: 048
     Dates: start: 20010601
  8. LEVOTHYROX [Concomitant]
     Dosage: 200 MG, 1X/DAY
     Route: 048
     Dates: start: 20030701
  9. ALLOPURINOL [Concomitant]
     Dosage: 1 DF, 1X/DAY
     Route: 048
     Dates: start: 20030101
  10. STAGID [Concomitant]
     Dosage: 3 TABLET A DAY
     Route: 048
     Dates: start: 20030101

REACTIONS (1)
  - MYOCARDIAL INFARCTION [None]
